FAERS Safety Report 5858827-5 (Version None)
Quarter: 2008Q3

REPORT INFORMATION
  Report Type: 
  Country: None (occurrence: None)
  Receive Date: 20080818
  Receipt Date: 20080505
  Transmission Date: 20090109
  Serious: No
  Sender: FDA-Public Use
  Company Number: WAES 0703USA04110

PATIENT
  Age: 56 Year
  Sex: Male

DRUGS (9)
  1. JANUVIA [Suspect]
     Indication: TYPE 2 DIABETES MELLITUS
     Dosage: 100 MG/DAILY/PO
     Route: 048
     Dates: start: 20070312, end: 20080504
  2. LOTENSIN [Concomitant]
  3. NOVOLIN [Concomitant]
  4. PLAVIX [Concomitant]
  5. TERTURNA [Concomitant]
  6. ULTRASE MT20 [Concomitant]
  7. GLYBURIDE [Concomitant]
  8. HYDROCODONE BITARTRATE [Concomitant]
  9. OMEGA-3 MARINE TRIGLYCERIDES [Concomitant]

REACTIONS (5)
  - BLOOD GLUCOSE INCREASED [None]
  - DRUG INEFFECTIVE [None]
  - HEADACHE [None]
  - NAUSEA [None]
  - VOMITING [None]
